FAERS Safety Report 6197451-4 (Version None)
Quarter: 2009Q2

REPORT INFORMATION
  Report Type: 
  Country: None (occurrence: None)
  Receive Date: 20090521
  Receipt Date: 20090218
  Transmission Date: 20091009
  Serious: No
  Sender: FDA-Public Use
  Company Number: US-TEVA-186276USA

PATIENT
  Age: 60 Year
  Sex: Female

DRUGS (2)
  1. AZILECT [Suspect]
  2. PRAMIPEXOLE DIHYDROCHLORIDE [Concomitant]

REACTIONS (1)
  - VOMITING [None]
